FAERS Safety Report 6663456-X (Version None)
Quarter: 2010Q2

REPORT INFORMATION
  Report Type: 
  Country: None (occurrence: None)
  Receive Date: 20100401
  Receipt Date: 20100323
  Transmission Date: 20101027
  Serious: No
  Sender: FDA-Public Use
  Company Number: JP-PFIZER INC-2010035036

PATIENT
  Age: 91 Year
  Sex: Female

DRUGS (1)
  1. ZOLOFT [Suspect]
     Dosage: UNK
     Route: 048
     Dates: start: 20081016

REACTIONS (1)
  - FAECES DISCOLOURED [None]
